FAERS Safety Report 24942317 (Version 1)
Quarter: 2025Q1

REPORT INFORMATION
  Report Type: Spontaneous
  Country: US (occurrence: US)
  Receive Date: 20250207
  Receipt Date: 20250207
  Transmission Date: 20250409
  Serious: No
  Sender: MILLICENT HOLDINGS
  Company Number: US-Millicent Holdings Ltd.-MILL20250042

PATIENT
  Age: 47 Year
  Sex: Female

DRUGS (3)
  1. FEMRING [Suspect]
     Active Substance: ESTRADIOL ACETATE
     Indication: Artificial menopause
     Route: 067
     Dates: start: 2024
  2. FEMRING [Suspect]
     Active Substance: ESTRADIOL ACETATE
     Route: 067
     Dates: start: 2022, end: 2024
  3. ESTROGENS [Concomitant]
     Active Substance: ESTROGENS
     Indication: Supplementation therapy
     Dates: start: 20241220

REACTIONS (4)
  - Feeling abnormal [Unknown]
  - Drug ineffective [Not Recovered/Not Resolved]
  - Vulvovaginal mycotic infection [Unknown]
  - Off label use [None]

NARRATIVE: CASE EVENT DATE: 20240101
